FAERS Safety Report 7611581-9 (Version None)
Quarter: 2011Q3

REPORT INFORMATION
  Report Type: 
  Country: None (occurrence: None)
  Receive Date: 20110715
  Receipt Date: 20110711
  Transmission Date: 20111222
  Serious: Yes (Hospitalization)
  Sender: FDA-Public Use
  Company Number: US-GLAXOSMITHKLINE-A0936863A

PATIENT
  Age: 36 Year
  Sex: Female
  Weight: 89.5 kg

DRUGS (16)
  1. SINGULAIR [Concomitant]
  2. COMBIVENT [Concomitant]
  3. DEPO-PROVERA [Concomitant]
  4. FERROUS GLUCONATE [Concomitant]
  5. OXYGEN [Concomitant]
  6. FLOLAN [Suspect]
     Indication: PULMONARY ARTERIAL HYPERTENSION
     Dosage: 30NGKM UNKNOWN
     Route: 065
     Dates: start: 20070508
  7. GABAPENTIN [Concomitant]
  8. ADVAIR DISKUS 100/50 [Concomitant]
  9. LETAIRIS [Concomitant]
  10. TRUVADA [Concomitant]
  11. SPIRONOLACTONE [Concomitant]
  12. ISENTRESS [Concomitant]
  13. LOPERAMIDE [Concomitant]
  14. SODIUM CHLORIDE [Concomitant]
  15. TYLENOL W/ CODEINE [Concomitant]
  16. VALTREX [Concomitant]

REACTIONS (3)
  - PAIN IN EXTREMITY [None]
  - OEDEMA PERIPHERAL [None]
  - TENDONITIS [None]
